FAERS Safety Report 11270989 (Version 1)
Quarter: 2015Q3

REPORT INFORMATION
  Report Type: Spontaneous
  Country: IN (occurrence: IN)
  Receive Date: 20150714
  Receipt Date: 20150714
  Transmission Date: 20151125
  Serious: Yes (Hospitalization)
  Sender: FDA-Public Use
  Company Number: IN-MYLANLABS-2015M1023001

PATIENT

DRUGS (1)
  1. METHOTREXATE [Suspect]
     Active Substance: METHOTREXATE
     Indication: PSORIASIS
     Dosage: 5MG DAILY (INSTEAD OF WEEKLY) FOR 20 DAYS
     Route: 048

REACTIONS (10)
  - Toxicity to various agents [Recovered/Resolved]
  - Inappropriate schedule of drug administration [Recovered/Resolved]
  - Stomatitis [Recovered/Resolved]
  - Haematemesis [Recovered/Resolved]
  - Eosinophilia [Recovered/Resolved]
  - Accidental overdose [Recovered/Resolved]
  - Melaena [Recovered/Resolved]
  - Oral candidiasis [Recovered/Resolved]
  - Leukopenia [Recovered/Resolved]
  - Thrombocytopenia [Recovered/Resolved]
